FAERS Safety Report 5130457-2 (Version None)
Quarter: 2006Q4

REPORT INFORMATION
  Report Type: 
  Country: None (occurrence: None)
  Receive Date: 20061013
  Receipt Date: 20060928
  Transmission Date: 20070319
  Serious: Yes (Death)
  Sender: FDA-Public Use
  Company Number: 2006122036

PATIENT
  Sex: Female

DRUGS (3)
  1. CELEBREX [Suspect]
     Dates: start: 20000301, end: 20021114
  2. BEXTRA [Suspect]
     Dates: start: 20000301, end: 20021114
  3. VIOXX [Suspect]
     Dates: start: 20000301, end: 20021114

REACTIONS (1)
  - MYOCARDIAL INFARCTION [None]
